FAERS Safety Report 24234495 (Version 1)
Quarter: 2024Q3

REPORT INFORMATION
  Report Type: Spontaneous
  Country: US (occurrence: None)
  Receive Date: 20240821
  Receipt Date: 20240821
  Transmission Date: 20241016
  Serious: Yes (Other)
  Sender: ASTRAZENECA
  Company Number: 2024A184915

PATIENT

DRUGS (1)
  1. SYMBICORT [Suspect]
     Active Substance: BUDESONIDE\FORMOTEROL FUMARATE DIHYDRATE
     Dosage: UNKNOWN UNKNOWN
     Route: 055

REACTIONS (6)
  - Blindness unilateral [Unknown]
  - Vision blurred [Unknown]
  - Cataract [Unknown]
  - Diplopia [Unknown]
  - Malaise [Unknown]
  - Incorrect dose administered [Unknown]
